FAERS Safety Report 8897396 (Version 1)
Quarter: 2012Q4

REPORT INFORMATION
  Report Type: 
  Country: US (occurrence: US)
  Receive Date: 20121108
  Receipt Date: 20121108
  Transmission Date: 20130627
  Serious: No
  Sender: FDA-Public Use
  Company Number: US-AMGEN-USASP2012027312

PATIENT
  Age: 47 Year
  Sex: Female
  Weight: 72.56 kg

DRUGS (8)
  1. ENBREL [Suspect]
     Indication: PRODUCT USED FOR UNKNOWN INDICATION
     Dosage: 50 mg, qwk
     Route: 058
  2. RIBAVIRIN [Concomitant]
  3. HYDROXYZINE PAM [Concomitant]
     Dosage: 50 mg, UNK
  4. INCIVEK [Concomitant]
     Dosage: 375 mg, UNK
  5. PEGASYS [Concomitant]
     Dosage: 180 mug, UNK
  6. WELLBUTRIN [Concomitant]
     Dosage: 150 mg, UNK
  7. TRAZODONE [Concomitant]
     Dosage: 100 mg, UNK
  8. LEVOTHYROXIN [Concomitant]
     Dosage: 112 mug, UNK

REACTIONS (2)
  - Rash [Recovered/Resolved]
  - Drug hypersensitivity [Recovered/Resolved]
